FAERS Safety Report 23465089 (Version 1)
Quarter: 2024Q1

REPORT INFORMATION
  Report Type: Spontaneous
  Country: CA (occurrence: CA)
  Receive Date: 20240201
  Receipt Date: 20240201
  Transmission Date: 20240410
  Serious: Yes (Hospitalization)
  Sender: FDA-Public Use
  Company Number: CA-SANDOZ-SDZ2024CA009538

PATIENT
  Age: 35 Year
  Sex: Female
  Weight: 136 kg

DRUGS (1)
  1. AMOXICILLIN [Suspect]
     Active Substance: AMOXICILLIN
     Indication: Tooth abscess
     Dosage: 500 MG, TID
     Route: 048

REACTIONS (2)
  - Anaphylactic shock [Recovered/Resolved]
  - Intensive care [Recovered/Resolved]
